FAERS Safety Report 12420140 (Version 1)
Quarter: 2016Q2

REPORT INFORMATION
  Report Type: Spontaneous
  Country: US (occurrence: US)
  Receive Date: 20160531
  Receipt Date: 20160531
  Transmission Date: 20160815
  Serious: No
  Sender: FDA-Public Use
  Company Number: US-GLAXOSMITHKLINE-US2016067822

PATIENT
  Age: 54 Year
  Sex: Female

DRUGS (9)
  1. ACYCLOVIR. [Concomitant]
     Active Substance: ACYCLOVIR
  2. REQUIP [Concomitant]
     Active Substance: ROPINIROLE HYDROCHLORIDE
  3. MOBIC [Concomitant]
     Active Substance: MELOXICAM
  4. LORATADINE. [Concomitant]
     Active Substance: LORATADINE
  5. PAXIL [Concomitant]
     Active Substance: PAROXETINE HYDROCHLORIDE
  6. TANZEUM [Suspect]
     Active Substance: ALBIGLUTIDE
     Indication: WEIGHT DECREASED
     Dosage: 30 MG, SINGLE
     Route: 042
     Dates: start: 20160509
  7. ATIVAN [Concomitant]
     Active Substance: LORAZEPAM
  8. PROPRANOLOL [Concomitant]
     Active Substance: PROPRANOLOL\PROPRANOLOL HYDROCHLORIDE
  9. ASPIRIN (BABY) [Concomitant]
     Active Substance: ASPIRIN

REACTIONS (2)
  - Drug ineffective [Not Recovered/Not Resolved]
  - Product use issue [Unknown]

NARRATIVE: CASE EVENT DATE: 20160509
